FAERS Safety Report 7642221-0 (Version None)
Quarter: 2011Q3

REPORT INFORMATION
  Report Type: 
  Country: None (occurrence: None)
  Receive Date: 20110728
  Receipt Date: 20110718
  Transmission Date: 20111222
  Serious: Yes (Hospitalization)
  Sender: FDA-Public Use
  Company Number: PHHY2011US64967

PATIENT
  Sex: Male

DRUGS (8)
  1. ALBUTEROL SULFATE AUTOHALER [Concomitant]
     Dosage: UNK UKN, IN AM
  2. PULMOZYME [Concomitant]
     Dosage: UNK UKN, BID
  3. TOBI [Suspect]
     Indication: CYSTIC FIBROSIS
     Dosage: 300 MG, BID
  4. ZITHROMAX [Concomitant]
     Dosage: UNK UKN, UNK
  5. ADVAIR DISKUS 100/50 [Concomitant]
     Dosage: UNK UKN, UNK
  6. SODIUM CHLORIDE CONCENTRATED INJ [Concomitant]
     Dosage: UNK UKN, IN PM
  7. CAYSTON [Concomitant]
     Dosage: UNK UKN, UNK
  8. ERGOCALCIFEROL [Concomitant]
     Dosage: UNK UKN, UNK

REACTIONS (1)
  - LUNG INFECTION [None]
